FAERS Safety Report 7119977-9 (Version None)
Quarter: 2010Q4

REPORT INFORMATION
  Report Type: 
  Country: None (occurrence: None)
  Receive Date: 20101123
  Receipt Date: 20101115
  Transmission Date: 20110411
  Serious: Yes (Other)
  Sender: FDA-Public Use
  Company Number: US-ROCHE-663809

PATIENT
  Sex: Female
  Weight: 61.2 kg

DRUGS (1)
  1. ACCUTANE [Suspect]
     Route: 065
     Dates: start: 19880404, end: 19890115

REACTIONS (6)
  - CHEILITIS [None]
  - COLITIS ULCERATIVE [None]
  - DRY EYE [None]
  - INFLAMMATORY BOWEL DISEASE [None]
  - LIP DRY [None]
  - PROCTITIS ULCERATIVE [None]
